FAERS Safety Report 4803164-0 (Version None)
Quarter: 2005Q4

REPORT INFORMATION
  Report Type: 
  Country: None (occurrence: None)
  Receive Date: 20051019
  Receipt Date: 20051011
  Transmission Date: 20060501
  Serious: Yes (Hospitalization)
  Sender: FDA-Public Use
  Company Number: IT-MERCK-0510USA07054

PATIENT
  Age: 61 Year
  Sex: Female

DRUGS (5)
  1. CUPRIMINE [Suspect]
     Indication: SYSTEMIC SCLEROSIS
     Route: 048
     Dates: end: 20030101
  2. ENALAPRIL MALEATE [Concomitant]
     Route: 065
  3. NIFEDIPINE [Concomitant]
     Route: 065
  4. PREDNISONE [Concomitant]
     Route: 065
  5. ILOPROST [Concomitant]
     Route: 065

REACTIONS (6)
  - BRONCHIOLITIS [None]
  - CRYPTOGENIC ORGANIZING PNEUMONIA [None]
  - HYPOCAPNIA [None]
  - HYPOXIA [None]
  - PULMONARY HYPERTENSION [None]
  - RESPIRATORY ALKALOSIS [None]
